FAERS Safety Report 11318963 (Version 1)
Quarter: 2015Q3

REPORT INFORMATION
  Report Type: Spontaneous
  Country: IT (occurrence: IT)
  Receive Date: 20150729
  Receipt Date: 20150729
  Transmission Date: 20151125
  Serious: Yes (Death)
  Sender: FDA-Public Use
  Company Number: IT-HOSPIRA-2530142

PATIENT
  Age: 62 Year
  Sex: Female

DRUGS (2)
  1. DOCETAXEL. [Suspect]
     Active Substance: DOCETAXEL
     Indication: BREAST CANCER STAGE IV
     Route: 042
     Dates: start: 20130118, end: 20130118
  2. EPIRUBICIN [Concomitant]
     Active Substance: EPIRUBICIN
     Indication: BREAST CANCER STAGE IV
     Route: 042
     Dates: start: 20130118, end: 20130118

REACTIONS (4)
  - Ovarian necrosis [Fatal]
  - Gastrointestinal necrosis [Fatal]
  - Peritonitis [Fatal]
  - Shock [Fatal]

NARRATIVE: CASE EVENT DATE: 20130126
